FAERS Safety Report 21734830 (Version 1)
Quarter: 2022Q4

REPORT INFORMATION
  Report Type: Spontaneous
  Country: DK (occurrence: DK)
  Receive Date: 20221215
  Receipt Date: 20221215
  Transmission Date: 20230113
  Serious: Yes (Hospitalization, Other)
  Sender: FDA-Public Use
  Company Number: None

PATIENT
  Age: 52 Year
  Sex: Female

DRUGS (3)
  1. CLINDAMYCIN HYDROCHLORIDE [Suspect]
     Active Substance: CLINDAMYCIN HYDROCHLORIDE
     Indication: Infection
     Dosage: DOSAGE AND STRENGTH: UNKNOWN
     Dates: start: 202002, end: 20200219
  2. RIMACTANE [Suspect]
     Active Substance: RIFAMPIN
     Indication: Infection
     Dosage: DOSAGE AND STRENGTH: UNKNOWN
     Dates: start: 202002, end: 20200215
  3. DULOXETINE HYDROCHLORIDE [Suspect]
     Active Substance: DULOXETINE HYDROCHLORIDE
     Indication: Depression
     Dosage: DOSAGE: VARYING WITH PAUSATIONS AND BETWEEN 30MG AND 120MG DAILY

REACTIONS (8)
  - Generalised tonic-clonic seizure [Recovered/Resolved]
  - Hypertensive crisis [Recovered/Resolved]
  - Dizziness [Recovered/Resolved]
  - Headache [Recovered/Resolved]
  - Hypertension [Unknown]
  - Syncope [Recovered/Resolved]
  - Muscle twitching [Recovered/Resolved]
  - Orthostatic hypotension [Recovered/Resolved]

NARRATIVE: CASE EVENT DATE: 20200201
